FAERS Safety Report 6527225-3 (Version None)
Quarter: 2009Q4

REPORT INFORMATION
  Report Type: 
  Country: None (occurrence: None)
  Receive Date: 20091230
  Receipt Date: 20091219
  Transmission Date: 20100525
  Serious: Yes (Life-Threatening, Other)
  Sender: FDA-Public Use
  Company Number: POMP-1000724

PATIENT
  Age: 4 Month
  Sex: Female
  Weight: 7.3 kg

DRUGS (8)
  1. MYOZYME [Suspect]
     Indication: GLYCOGEN STORAGE DISEASE TYPE II
     Dosage: SEE IMAGE
     Route: 042
     Dates: start: 20081218, end: 20081218
  2. MYOZYME [Suspect]
     Indication: GLYCOGEN STORAGE DISEASE TYPE II
     Dosage: SEE IMAGE
     Route: 042
     Dates: start: 20090122, end: 20090122
  3. MYOZYME [Suspect]
     Indication: GLYCOGEN STORAGE DISEASE TYPE II
     Dosage: SEE IMAGE
     Route: 042
     Dates: start: 20090205, end: 20090205
  4. MYOZYME [Suspect]
     Indication: GLYCOGEN STORAGE DISEASE TYPE II
     Dosage: SEE IMAGE
     Route: 042
     Dates: start: 20090212, end: 20090212
  5. MYOZYME [Suspect]
     Indication: GLYCOGEN STORAGE DISEASE TYPE II
     Dosage: SEE IMAGE
     Route: 042
     Dates: start: 20090312, end: 20090312
  6. MYOZYME [Suspect]
     Indication: GLYCOGEN STORAGE DISEASE TYPE II
     Dosage: SEE IMAGE
     Route: 042
     Dates: start: 20090319, end: 20090319
  7. MYOZYME [Suspect]
     Indication: GLYCOGEN STORAGE DISEASE TYPE II
     Dosage: SEE IMAGE
     Route: 042
     Dates: start: 20090402, end: 20090402
  8. MYOZYME [Suspect]
     Indication: GLYCOGEN STORAGE DISEASE TYPE II
     Dosage: SEE IMAGE
     Route: 042
     Dates: start: 20081122

REACTIONS (8)
  - COUGH [None]
  - FLUSHING [None]
  - HYPOTONIA [None]
  - INFUSION RELATED REACTION [None]
  - PALLOR [None]
  - SERUM SICKNESS [None]
  - UNRESPONSIVE TO STIMULI [None]
  - VOMITING [None]
